FAERS Safety Report 5121747-8 (Version None)
Quarter: 2006Q4

REPORT INFORMATION
  Report Type: 
  Country: None (occurrence: None)
  Receive Date: 20061003
  Receipt Date: 20060929
  Transmission Date: 20070319
  Serious: Yes (Other)
  Sender: FDA-Public Use
  Company Number: 225745

PATIENT
  Age: 78 Year
  Sex: Male

DRUGS (1)
  1. MABTHERA(RITUXIMAB) CONC FOR SOLUTION FOR INFUSION [Suspect]
     Dosage: MG, INTRAVENOUS
     Route: 042
     Dates: start: 20060101, end: 20060101

REACTIONS (4)
  - ARTHROPATHY [None]
  - INFUSION RELATED REACTION [None]
  - NEUROPATHY PERIPHERAL [None]
  - TUMOUR LYSIS SYNDROME [None]
